FAERS Safety Report 8920947 (Version 2)
Quarter: 2012Q4

REPORT INFORMATION
  Report Type: 
  Country: NL (occurrence: NL)
  Receive Date: 20121121
  Receipt Date: 20121129
  Transmission Date: 20130627
  Serious: Yes (Death, Life-Threatening, Hospitalization, Other)
  Sender: FDA-Public Use
  Company Number: NL-ACTELION-A-CH2012-75108

PATIENT
  Age: 71 Year
  Sex: Female
  Weight: 60 kg

DRUGS (8)
  1. TRACLEER [Suspect]
     Indication: PULMONARY ARTERIAL HYPERTENSION
     Dosage: 125 mg, bid
     Route: 048
     Dates: start: 20120718
  2. TRACLEER [Suspect]
     Dosage: 62.5 mg, bid
     Route: 048
     Dates: start: 20120618, end: 20120717
  3. FENTANYL [Suspect]
     Dosage: UNK
     Dates: start: 20100101, end: 20121101
  4. CITALOPRAM [Concomitant]
     Dosage: UNK
     Dates: start: 20100601, end: 20121101
  5. FERROFUMARAAT [Concomitant]
     Dosage: UNK
     Dates: start: 20090101, end: 20121101
  6. METFORMIN [Concomitant]
     Dosage: UNK
     Dates: start: 20070101, end: 20121101
  7. ACETYLSALICYLIC ACID [Concomitant]
     Dosage: UNK
     Dates: start: 20100601, end: 20121101
  8. CLOPIDOGREL [Concomitant]
     Dosage: UNK
     Dates: start: 20100301

REACTIONS (6)
  - Multi-organ failure [Fatal]
  - Sepsis [Fatal]
  - Peritonitis [Fatal]
  - Ileus [Fatal]
  - Pneumonia [Recovered/Resolved]
  - Gastrointestinal haemorrhage [Unknown]
